FAERS Safety Report 4949378-0 (Version None)
Quarter: 2006Q1

REPORT INFORMATION
  Report Type: 
  Country: None (occurrence: None)
  Receive Date: 20060315
  Receipt Date: 20060222
  Transmission Date: 20060701
  Serious: Yes (Hospitalization)
  Sender: FDA-Public Use
  Company Number: US_0508120893

PATIENT
  Age: 52 Year
  Sex: Male

DRUGS (11)
  1. ZYPREXA [Suspect]
     Indication: BIPOLAR DISORDER
     Dosage: SEE IMAGE
     Route: 048
     Dates: start: 19980101, end: 20010406
  2. ZYPREXA [Suspect]
     Indication: BIPOLAR DISORDER
     Dosage: SEE IMAGE
     Route: 048
     Dates: start: 20010406, end: 20010503
  3. ZYPREXA [Suspect]
     Indication: BIPOLAR DISORDER
     Dosage: SEE IMAGE
     Route: 048
     Dates: start: 20010621, end: 20040601
  4. PROZAC [Suspect]
     Indication: DEPRESSION
     Dosage: 40 MG, DAILY (1/D), ORAL
     Route: 048
     Dates: start: 20010503, end: 20010920
  5. PROZAC [Suspect]
     Indication: DEPRESSION
     Dosage: 40 MG, DAILY (1/D), ORAL
     Route: 048
     Dates: start: 19980101, end: 20021113
  6. PROZAC [Suspect]
     Indication: DEPRESSION
     Dosage: 40 MG, DAILY (1/D), ORAL
     Route: 048
     Dates: start: 20031020, end: 20040927
  7. BUPROPION HCL [Concomitant]
  8. DEPAKOTE [Concomitant]
  9. LIPITOR [Concomitant]
  10. PRIMIDONE [Concomitant]
  11. KLONOPIN [Concomitant]

REACTIONS (13)
  - BLOOD CHOLESTEROL INCREASED [None]
  - BLOOD PH INCREASED [None]
  - BLOOD TRIGLYCERIDES INCREASED [None]
  - DIABETES MELLITUS INADEQUATE CONTROL [None]
  - DIABETES MELLITUS NON-INSULIN-DEPENDENT [None]
  - DIABETIC NEUROPATHY [None]
  - EXTRAPYRAMIDAL DISORDER [None]
  - HALLUCINATION, AUDITORY [None]
  - HYPONATRAEMIA [None]
  - INTENTION TREMOR [None]
  - MANIA [None]
  - PNEUMONIA PRIMARY ATYPICAL [None]
  - PO2 DECREASED [None]
